FAERS Safety Report 10160232 (Version 1)
Quarter: 2014Q2

REPORT INFORMATION
  Report Type: Spontaneous
  Country: US (occurrence: None)
  Receive Date: 20140507
  Receipt Date: 20140507
  Transmission Date: 20141212
  Serious: No
  Sender: FDA-Public Use
  Company Number: None

PATIENT
  Age: 58 Year
  Sex: Male

DRUGS (7)
  1. PRAVASTATIN [Suspect]
     Indication: BLOOD CHOLESTEROL INCREASED
     Route: 048
     Dates: start: 20140215, end: 20140218
  2. RAMIPRIL [Suspect]
  3. AMLODIPINE [Suspect]
  4. VITAMIN C [Concomitant]
  5. FLAXSEED OIL [Concomitant]
  6. FISH OIL [Concomitant]
  7. BAY ASPIRIN [Concomitant]

REACTIONS (12)
  - Chest discomfort [None]
  - Myalgia [None]
  - Tenderness [None]
  - Asthenia [None]
  - Nausea [None]
  - Abdominal pain upper [None]
  - Back pain [None]
  - Fatigue [None]
  - Dysphonia [None]
  - Dyspnoea [None]
  - Memory impairment [None]
  - Memory impairment [None]
